FAERS Safety Report 16615044 (Version 1)
Quarter: 2019Q3

REPORT INFORMATION
  Report Type: Spontaneous
  Country: TW (occurrence: TW)
  Receive Date: 20190723
  Receipt Date: 20190723
  Transmission Date: 20191004
  Serious: Yes (Life-Threatening, Other)
  Sender: FDA-Public Use
  Company Number: TW-GILEAD-2019-0418639

PATIENT
  Age: 47 Year
  Sex: Female

DRUGS (1)
  1. VIREAD [Suspect]
     Active Substance: TENOFOVIR DISOPROXIL FUMARATE
     Indication: HEPATITIS B
     Dosage: 300 MG, UNK
     Route: 048
     Dates: start: 201903, end: 201907

REACTIONS (3)
  - Hypokalaemia [Unknown]
  - Torsade de pointes [Unknown]
  - Paralysis [Unknown]

NARRATIVE: CASE EVENT DATE: 201906
